FAERS Safety Report 25795475 (Version 1)
Quarter: 2025Q3

REPORT INFORMATION
  Report Type: Spontaneous
  Country: US (occurrence: None)
  Receive Date: 20250911
  Receipt Date: 20250911
  Transmission Date: 20251020
  Serious: Yes (Death)
  Sender: FDA-CTU
  Company Number: None

PATIENT
  Age: 84 Year
  Sex: Male

DRUGS (2)
  1. JAKAFI [Suspect]
     Active Substance: RUXOLITINIB
     Indication: Essential thrombocythaemia
     Dosage: 10  MG BID ORAL ?
     Route: 048
     Dates: start: 20200129, end: 20250911
  2. JAKAFI [Suspect]
     Active Substance: RUXOLITINIB
     Indication: Thrombocytosis

REACTIONS (1)
  - Death [None]

NARRATIVE: CASE EVENT DATE: 20250911
